FAERS Safety Report 15022175 (Version 2)
Quarter: 2018Q3

REPORT INFORMATION
  Report Type: Spontaneous
  Country: US (occurrence: US)
  Receive Date: 20180618
  Receipt Date: 20180903
  Transmission Date: 20181010
  Serious: Yes (Other)
  Sender: FDA-Public Use
  Company Number: US-SA-2018SA156457

PATIENT
  Age: 58 Year
  Sex: Female

DRUGS (9)
  1. TIMOPTIC [Concomitant]
     Active Substance: TIMOLOL MALEATE
  2. KLOR?CON [Concomitant]
     Active Substance: POTASSIUM CHLORIDE
  3. FERROUS SULFATE. [Concomitant]
     Active Substance: FERROUS SULFATE
  4. TAXOTERE [Suspect]
     Active Substance: DOCETAXEL
     Dosage: 145 UNK
     Route: 042
     Dates: start: 20090127, end: 20090127
  5. TAXOTERE [Suspect]
     Active Substance: DOCETAXEL
     Indication: BREAST CANCER FEMALE
     Dosage: 145 MG, Q3W
     Route: 042
     Dates: start: 20081120, end: 20081120
  6. LOSARTAN. [Concomitant]
     Active Substance: LOSARTAN
  7. PARAPLATIN [Concomitant]
     Active Substance: CARBOPLATIN
  8. SIMVASTATIN. [Concomitant]
     Active Substance: SIMVASTATIN
  9. LATANOPROST. [Concomitant]
     Active Substance: LATANOPROST

REACTIONS (2)
  - Psychological trauma [Unknown]
  - Alopecia [Recovering/Resolving]
